FAERS Safety Report 5464484-2 (Version None)
Quarter: 2007Q3

REPORT INFORMATION
  Report Type: 
  Country: None (occurrence: None)
  Receive Date: 20070921
  Receipt Date: 20070912
  Transmission Date: 20080115
  Serious: Yes (Other)
  Sender: FDA-Public Use
  Company Number: AU-SANOFI-SYNTHELABO-A01200710260

PATIENT
  Age: 31 Year
  Sex: Male

DRUGS (2)
  1. ALCOHOL [Concomitant]
     Indication: DRUG USE FOR UNKNOWN INDICATION
     Dosage: A COUPLE OF BOTTLES OF WINE THROUGH OUT THE DAY AND 1 BOTTLE AT NIGHT
     Route: 048
  2. ZOLPIDEM TARTRATE [Suspect]
     Indication: OVERDOSE
     Route: 048

REACTIONS (5)
  - APNOEA [None]
  - CONVULSION [None]
  - INTENTIONAL OVERDOSE [None]
  - JOINT STIFFNESS [None]
  - THROAT TIGHTNESS [None]
